FAERS Safety Report 8882531 (Version 1)
Quarter: 2012Q4

REPORT INFORMATION
  Report Type: 
  Country: BR (occurrence: BR)
  Receive Date: 20121102
  Receipt Date: 20121102
  Transmission Date: 20130627
  Serious: Yes (Hospitalization, Disabling)
  Sender: FDA-Public Use
  Company Number: BR-ASTRAZENECA-2012SE82255

PATIENT
  Age: 26850 Day
  Sex: Female
  Weight: 58 kg

DRUGS (1)
  1. ATACAND HCT [Suspect]
     Indication: BLOOD PRESSURE ABNORMAL
     Dosage: 16+12.5 MG, DAILY
     Route: 048
     Dates: start: 2007

REACTIONS (5)
  - Device dislocation [Recovered/Resolved with Sequelae]
  - Abasia [Not Recovered/Not Resolved]
  - Hypertension [Recovered/Resolved]
  - Weight decreased [Not Recovered/Not Resolved]
  - Drug ineffective [Unknown]
